FAERS Safety Report 5241403-5 (Version None)
Quarter: 2007Q1

REPORT INFORMATION
  Report Type: 
  Country: None (occurrence: None)
  Receive Date: 20070215
  Receipt Date: 20070215
  Transmission Date: 20070707
  Serious: No
  Sender: FDA-Public Use
  Company Number: None

PATIENT

DRUGS (1)
  1. AMOXIL [Suspect]
     Dosage: PO
     Route: 048
     Dates: start: 20061120, end: 20061128

REACTIONS (1)
  - RASH [None]
